FAERS Safety Report 14112548 (Version 1)
Quarter: 2017Q4

REPORT INFORMATION
  Report Type: Spontaneous
  Country: US (occurrence: US)
  Receive Date: 20171020
  Receipt Date: 20171020
  Transmission Date: 20180321
  Serious: No
  Sender: FDA-Public Use
  Company Number: PHEH2017US033805

PATIENT
  Age: 62 Year
  Sex: Male

DRUGS (1)
  1. HYCAMTIN [Suspect]
     Active Substance: TOPOTECAN HYDROCHLORIDE
     Indication: ADRENAL GLAND CANCER
     Dosage: 3 MG, QD
     Route: 048
     Dates: start: 20170719, end: 20171013

REACTIONS (1)
  - Therapeutic response decreased [Unknown]

NARRATIVE: CASE EVENT DATE: 20171001
